FAERS Safety Report 16246463 (Version 2)
Quarter: 2019Q3

REPORT INFORMATION
  Report Type: Report from Study
  Country: None (occurrence: AR)
  Receive Date: 20190427
  Receipt Date: 20190913
  Transmission Date: 20191004
  Serious: Yes (Other)
  Sender: FDA-Public Use
  Company Number: AR-ABBVIE-19K-007-2758705-00

PATIENT
  Age: 66 Year
  Sex: Female

DRUGS (3)
  1. CORTICOSTEROIDS [Concomitant]
     Active Substance: CORTICOSTEROID NOS
     Indication: PRODUCT USED FOR UNKNOWN INDICATION
  2. HUMIRA [Suspect]
     Active Substance: ADALIMUMAB
     Indication: ANKYLOSING SPONDYLITIS
     Route: 058
     Dates: start: 20160901, end: 201810
  3. METHOTREXATE. [Concomitant]
     Active Substance: METHOTREXATE
     Indication: PRODUCT USED FOR UNKNOWN INDICATION

REACTIONS (4)
  - Ankylosing spondylitis [Not Recovered/Not Resolved]
  - Cartilage injury [Unknown]
  - Cerebrospinal fistula [Recovering/Resolving]
  - Spinal cord compression [Unknown]

NARRATIVE: CASE EVENT DATE: 201812
